FAERS Safety Report 8246700-7 (Version None)
Quarter: 2012Q1

REPORT INFORMATION
  Report Type: 
  Country: None (occurrence: None)
  Receive Date: 20120330
  Receipt Date: 20120326
  Transmission Date: 20120608
  Serious: Yes (Hospitalization)
  Sender: FDA-Public Use
  Company Number: US-AMGEN-USASP2012009273

PATIENT
  Age: 59 Year
  Sex: Female

DRUGS (2)
  1. ENBREL [Suspect]
     Indication: PSORIATIC ARTHROPATHY
     Dosage: 50 MG, QWK
     Dates: start: 20070403
  2. ENBREL [Suspect]
     Indication: PSORIASIS

REACTIONS (5)
  - WEIGHT DECREASED [None]
  - JOINT STIFFNESS [None]
  - COAGULATION TIME PROLONGED [None]
  - CEREBROVASCULAR ACCIDENT [None]
  - PSORIASIS [None]
